FAERS Safety Report 9909777 (Version 1)
Quarter: 2014Q1

REPORT INFORMATION
  Report Type: Spontaneous
  Country: US (occurrence: None)
  Receive Date: 20140212
  Receipt Date: 20140212
  Transmission Date: 20141002
  Serious: Yes (Death)
  Sender: FDA-Public Use
  Company Number: 2014020101

PATIENT
  Age: 54 Year
  Sex: Female

DRUGS (9)
  1. CARISOPRODOL [Suspect]
  2. ACETAMINOPHEN/HYDROCODONE [Suspect]
  3. VENLAFAXINE [Suspect]
  4. MORPHINE [Suspect]
  5. DIPHENHYDRAMINE [Suspect]
  6. QUETIAPINE [Suspect]
  7. ALPRAZOLAM [Suspect]
  8. LAMOTRIGINE [Suspect]
  9. GABAPENTIN [Suspect]

REACTIONS (4)
  - Exposure via ingestion [None]
  - Completed suicide [None]
  - Cardiac arrest [None]
  - Respiratory arrest [None]
